FAERS Safety Report 17840028 (Version 1)
Quarter: 2020Q2

REPORT INFORMATION
  Report Type: Spontaneous
  Country: RU (occurrence: RU)
  Receive Date: 20200529
  Receipt Date: 20200529
  Transmission Date: 20200714
  Serious: Yes (Hospitalization)
  Sender: FDA-Public Use
  Company Number: RU-DRREDDYS-RUS/RUS/20/0123352

PATIENT
  Age: 54 Year
  Sex: Male

DRUGS (6)
  1. CETRINE 10 MG [Suspect]
     Active Substance: CETIRIZINE HYDROCHLORIDE
     Indication: PRODUCT USED FOR UNKNOWN INDICATION
     Route: 048
  2. CEFAZOLIN [Suspect]
     Active Substance: CEFAZOLIN
     Indication: PRODUCT USED FOR UNKNOWN INDICATION
  3. IODOPIRON [POTASSIUM IODIDE\POVIDONE-IODINE] [Suspect]
     Active Substance: POTASSIUM IODIDE\POVIDONE-IODINE
     Indication: PRODUCT USED FOR UNKNOWN INDICATION
     Route: 048
  4. AMOXYCLAV [Suspect]
     Active Substance: AMOXICILLIN\CLAVULANATE POTASSIUM
     Indication: PRODUCT USED FOR UNKNOWN INDICATION
  5. FUCORCIN [Suspect]
     Active Substance: ACETONE\BORIC ACID\RESORCINOL
     Indication: PRODUCT USED FOR UNKNOWN INDICATION
  6. PRONTOSAN [POLIHEXANIDE] [Suspect]
     Active Substance: POLIHEXANIDE
     Indication: PRODUCT USED FOR UNKNOWN INDICATION

REACTIONS (1)
  - Rash pustular [Unknown]

NARRATIVE: CASE EVENT DATE: 20190726
